FAERS Safety Report 25128332 (Version 1)
Quarter: 2025Q1

REPORT INFORMATION
  Report Type: Spontaneous
  Country: US (occurrence: US)
  Receive Date: 20250327
  Receipt Date: 20250327
  Transmission Date: 20250409
  Serious: No
  Sender: EMD SERONO INC
  Company Number: US-Merck Healthcare KGaA-2025010565

PATIENT
  Age: 65 Year
  Sex: Male
  Weight: 63 kg

DRUGS (46)
  1. SEROSTIM [Suspect]
     Active Substance: SOMATROPIN
     Indication: Cachexia
     Dosage: 6 MG SOLUTION RECONSTITUTED ONE VIAL
     Dates: start: 20200521
  2. TESTIM [Suspect]
     Active Substance: TESTOSTERONE
     Indication: Testicular failure
  3. METRONIDAZOLE [Concomitant]
     Active Substance: METRONIDAZOLE
     Indication: Product used for unknown indication
  4. ALTACE [Concomitant]
     Active Substance: RAMIPRIL
     Indication: Product used for unknown indication
  5. CARVEDILOL [Concomitant]
     Active Substance: CARVEDILOL
     Indication: Product used for unknown indication
  6. CARVEDILOL [Concomitant]
     Active Substance: CARVEDILOL
  7. PRILOSEC [Concomitant]
     Active Substance: OMEPRAZOLE MAGNESIUM
     Indication: Product used for unknown indication
  8. METOCLOPRAMIDE HYDROCHLORIDE [Concomitant]
     Active Substance: METOCLOPRAMIDE HYDROCHLORIDE
     Indication: Product used for unknown indication
     Dosage: 1 TABLET BY MOUTH 3 TIMES A DAY
  9. FUROSEMIDE [Concomitant]
     Active Substance: FUROSEMIDE
     Indication: Product used for unknown indication
  10. SPIRONOLACTONE [Concomitant]
     Active Substance: SPIRONOLACTONE
     Indication: Product used for unknown indication
     Dosage: WITH FOOD
  11. POTASSIUM [Concomitant]
     Active Substance: POTASSIUM
     Indication: Product used for unknown indication
     Dosage: NOTE: BID 10 MEQ
  12. LOMOTIL [Concomitant]
     Active Substance: ATROPINE SULFATE\DIPHENOXYLATE HYDROCHLORIDE
     Indication: Product used for unknown indication
  13. TRIUMEQ [Concomitant]
     Active Substance: ABACAVIR SULFATE\DOLUTEGRAVIR SODIUM\LAMIVUDINE
     Indication: Product used for unknown indication
     Dosage: 600-50-300 MG TABLET BY MOUTH
  14. BACTROBAN [Concomitant]
     Active Substance: MUPIROCIN CALCIUM
     Indication: Product used for unknown indication
     Dosage: 1 APPLICATION TO AFFECTED AREA EXTERNALLY 3 TIMES A DAY
  15. LYRICA [Concomitant]
     Active Substance: PREGABALIN
     Indication: Product used for unknown indication
  16. FLUTICASONE PROPIONATE [Concomitant]
     Active Substance: FLUTICASONE PROPIONATE
     Indication: Product used for unknown indication
     Dosage: ACT SUSPENSION?2 SPRAYS IN EACH NOSTRIL DAILY
  17. CRESTOR [Concomitant]
     Active Substance: ROSUVASTATIN CALCIUM
     Indication: Product used for unknown indication
     Dosage: 02-07-17?BY MOUTH
  18. TESTOSTERONE [Concomitant]
     Active Substance: TESTOSTERONE
     Indication: Product used for unknown indication
  19. PRISTIQ EXTENDED-RELEASE [Concomitant]
     Active Substance: DESVENLAFAXINE SUCCINATE
     Indication: Product used for unknown indication
     Dosage: EXTENDED RELEASE TABLET, 24 HOUR, 1 TABLET ORALLY ONCE  A DAY.
  20. PRISTIQ EXTENDED-RELEASE [Concomitant]
     Active Substance: DESVENLAFAXINE SUCCINATE
     Dosage: EXTENDED RELEASE TABLET, 24 HOUR, 1 TABLET ORALLY ONCE  A DAY.
  21. AMMONIUM LACTATE [Concomitant]
     Active Substance: AMMONIUM LACTATE
     Indication: Product used for unknown indication
     Dosage: 1 APPLICATION TO AFFECTED AREA EXTERNALLY, TWICE A DAY.
  22. TEMAZEPAM [Concomitant]
     Active Substance: TEMAZEPAM
     Indication: Product used for unknown indication
  23. TEMAZEPAM [Concomitant]
     Active Substance: TEMAZEPAM
     Dosage: 1 CAPSULE QBS , PRN (AS NEEDED)
  24. CREON [Concomitant]
     Active Substance: PANCRELIPASE AMYLASE\PANCRELIPASE LIPASE\PANCRELIPASE PROTEASE
     Indication: Product used for unknown indication
     Dosage: DELAYED RELEASE CAPSULE, BY MOUTH
  25. CREON [Concomitant]
     Active Substance: PANCRELIPASE AMYLASE\PANCRELIPASE LIPASE\PANCRELIPASE PROTEASE
     Dosage: 12000-38000 UNIT DELAYED RELEASE CAPSULE, BY MOUTH
  26. INCRUSE ELLIPTA [Concomitant]
     Active Substance: UMECLIDINIUM BROMIDE
     Indication: Product used for unknown indication
     Dosage: AEROSOL POWDER BREATH ACTIVATED 1 PUFF INHALATION ONCE  DAY
  27. BREO ELLIPTA [Concomitant]
     Active Substance: FLUTICASONE FUROATE\VILANTEROL TRIFENATATE
     Indication: Product used for unknown indication
     Dosage: 200-25 MCG/NH AEROSOL POWDER BREATH ACTIVATED PUFF INHALATION ONCE A DAY
  28. ATROPINE\DIPHENOXYLATE [Concomitant]
     Active Substance: ATROPINE\DIPHENOXYLATE
     Indication: Product used for unknown indication
  29. ATROPINE\DIPHENOXYLATE [Concomitant]
     Active Substance: ATROPINE\DIPHENOXYLATE
     Dosage: 2.5-0.025 MG TABLET BY MOUTH 4 TIMES A DAY
  30. ALPRAZOLAM [Concomitant]
     Active Substance: ALPRAZOLAM
     Indication: Product used for unknown indication
     Dosage: 1 TABLET BY MOUTH EVERYDAY, AS NEEDED.
  31. FARXIGA [Concomitant]
     Active Substance: DAPAGLIFLOZIN PROPANEDIOL
     Indication: Product used for unknown indication
  32. MUPIROCIN [Concomitant]
     Active Substance: MUPIROCIN
     Indication: Product used for unknown indication
     Dosage: 3 TIMES A DAY EXTERNALLY FOR 5 DAYS.
  33. OMEPRAZOLE [Concomitant]
     Active Substance: OMEPRAZOLE
     Indication: Product used for unknown indication
     Dosage: 30 MINUTES BEFORE MORNING MEAL.
  34. FLUDROCORTISONE ACETATE [Concomitant]
     Active Substance: FLUDROCORTISONE ACETATE
     Indication: Product used for unknown indication
     Dosage: BY MOUTH
  35. PROMETHAZINE HYDROCHLORIDE [Concomitant]
     Active Substance: PROMETHAZINE HYDROCHLORIDE
     Indication: Product used for unknown indication
     Dosage: BY MOUTH
  36. NICOTROL [Concomitant]
     Active Substance: NICOTINE
     Indication: Product used for unknown indication
     Dosage: INHALER 1 CARTRIDGE
  37. ROSUVASTATIN CALCIUM [Concomitant]
     Active Substance: ROSUVASTATIN CALCIUM
     Indication: Product used for unknown indication
     Dosage: BY MOUTH FOR 90 DAYS.
  38. DESVENLAFAXINE SUCCINATE [Concomitant]
     Active Substance: DESVENLAFAXINE SUCCINATE
     Indication: Product used for unknown indication
     Dosage: ER, EXTENDED RELEASE TABLET, 24 HOUR
  39. PREGABALIN [Concomitant]
     Active Substance: PREGABALIN
     Indication: Product used for unknown indication
  40. TESTOSTERONE CYPIONATE [Concomitant]
     Active Substance: TESTOSTERONE CYPIONATE
     Indication: Product used for unknown indication
     Dosage: 200 MG/ML SOLUTION, 1 ML,
  41. TIZANIDINE HYDROCHLORIDE [Concomitant]
     Active Substance: TIZANIDINE HYDROCHLORIDE
     Indication: Product used for unknown indication
     Dosage: BY MOUTH FOR 90 DAYS
  42. HYDROCORTISONE [Concomitant]
     Active Substance: HYDROCORTISONE
     Indication: Product used for unknown indication
     Dosage: 2 TABLETS BY MOUTH AND 1 TABLET EVERY EVENING WITH FOOD OR MILK 30
  43. CLOTRIMAZOLE [Concomitant]
     Active Substance: CLOTRIMAZOLE
     Indication: Product used for unknown indication
     Dosage: APPLY TO AFFECTED AREA TOPICALLY.
  44. TRELEGY ELLIPTA [Concomitant]
     Active Substance: FLUTICASONE FUROATE\UMECLIDINIUM BROMIDE\VILANTEROL TRIFENATATE
     Indication: Product used for unknown indication
     Dosage: 100-62.5-25 MCG/ACT AEROSOL POWDER BREATH ACTIVATED INHALE 1 PUFF, 30 DAYS
  45. ACETAMINOPHEN\HYDROCODONE [Concomitant]
     Active Substance: ACETAMINOPHEN\HYDROCODONE
     Indication: Product used for unknown indication
  46. DIFLUCAN [Concomitant]
     Active Substance: FLUCONAZOLE
     Indication: Product used for unknown indication

REACTIONS (7)
  - Weight increased [Unknown]
  - Musculoskeletal pain [Unknown]
  - Mean cell haemoglobin increased [Unknown]
  - CD4 lymphocytes decreased [Unknown]
  - Lymphocyte count increased [Unknown]
  - Glycosylated haemoglobin increased [Unknown]
  - Drug ineffective [Unknown]

NARRATIVE: CASE EVENT DATE: 20200715
